FAERS Safety Report 18019718 (Version 1)
Quarter: 2020Q3

REPORT INFORMATION
  Report Type: Spontaneous
  Country: US (occurrence: US)
  Receive Date: 20200713
  Receipt Date: 20200713
  Transmission Date: 20201103
  Serious: Yes (Death)
  Sender: FDA-Public Use
  Company Number: None

PATIENT
  Age: 75 Year
  Sex: Female

DRUGS (45)
  1. MULTI?VITAMIN [Concomitant]
     Active Substance: .ALPHA.-TOCOPHEROL ACETATE, DL-\ASCORBIC ACID\CYANOCOBALAMIN\FLUORIDE ION\FOLIC ACID\NIACIN\PYRIDOXINE\RIBOFLAVIN\THIAMINE\VITAMIN A\VITAMIN D
  2. OLANZAPINE. [Concomitant]
     Active Substance: OLANZAPINE
  3. XARELTO [Concomitant]
     Active Substance: RIVAROXABAN
  4. DOK [Concomitant]
     Active Substance: DOCUSATE SODIUM
  5. MIDODRINE [Concomitant]
     Active Substance: MIDODRINE
  6. SOD CHLORIDE [Concomitant]
     Active Substance: SODIUM CHLORIDE
  7. VENTOLIN HFA [Concomitant]
     Active Substance: ALBUTEROL SULFATE
  8. HUMALOG [Concomitant]
     Active Substance: INSULIN LISPRO
  9. ONDANSETRON [Concomitant]
     Active Substance: ONDANSETRON
  10. AZITHROMYCIN ANHYDROUS. [Concomitant]
     Active Substance: AZITHROMYCIN ANHYDROUS
  11. MID?ACID GAS CHW [Concomitant]
  12. PROMETHAZINE [Concomitant]
     Active Substance: PROMETHAZINE HYDROCHLORIDE
  13. SENNA [Concomitant]
     Active Substance: SENNA LEAF\SENNOSIDES\SENNOSIDES A AND B
  14. MEKINIST [Suspect]
     Active Substance: TRAMETINIB DIMETHYL SULFOXIDE
     Indication: THYROID CANCER
     Route: 048
     Dates: start: 20190824, end: 20200626
  15. ASPIRIN. [Concomitant]
     Active Substance: ASPIRIN
  16. BENZONATATE. [Concomitant]
     Active Substance: BENZONATATE
  17. FLOVENT HFA [Concomitant]
     Active Substance: FLUTICASONE PROPIONATE
  18. FLUTICASONE. [Concomitant]
     Active Substance: FLUTICASONE
  19. TRAMADOL HCL [Concomitant]
     Active Substance: TRAMADOL HYDROCHLORIDE
  20. ALBUTEROL NEB [Concomitant]
     Active Substance: ALBUTEROL
  21. HYDROCO/APAP [Concomitant]
     Active Substance: ACETAMINOPHEN\HYDROCODONE
  22. OXYCODONE AND ACETAMINOPHEN [Concomitant]
     Active Substance: ACETAMINOPHEN\OXYCODONE HYDROCHLORIDE
  23. PANTOPRAZOLE [Concomitant]
     Active Substance: PANTOPRAZOLE
  24. ATORVASTATIN [Concomitant]
     Active Substance: ATORVASTATIN
  25. CARVEDILOL. [Concomitant]
     Active Substance: CARVEDILOL
  26. GABAPENTIN. [Concomitant]
     Active Substance: GABAPENTIN
  27. LEVOTHYROXIN [Concomitant]
     Active Substance: LEVOTHYROXINE
  28. LISINOPRIL. [Concomitant]
     Active Substance: LISINOPRIL
  29. MAG OXIDE [Concomitant]
     Active Substance: MAGNESIUM OXIDE
  30. METHYLPRED [Concomitant]
     Active Substance: METHYLPREDNISOLONE
  31. OSELTAMIVIR [Concomitant]
     Active Substance: OSELTAMIVIR
  32. STOOL SOFTNR [Concomitant]
  33. TRESIBA FLEX [Concomitant]
  34. ATRIAMCINOLON CRE [Concomitant]
  35. TAFINLAR [Suspect]
     Active Substance: DABRAFENIB MESYLATE
     Indication: THYROID CANCER
     Route: 048
     Dates: start: 20190823, end: 20200626
  36. CIPOFLOXACIN [Concomitant]
  37. DEMECLOCYCL [Concomitant]
  38. DOXYCYCL HYC [Concomitant]
  39. FEROSUL [Concomitant]
     Active Substance: FERROUS SULFATE
  40. LACTULOSE. [Concomitant]
     Active Substance: LACTULOSE
  41. LOSARTAN POT [Concomitant]
     Active Substance: LOSARTAN POTASSIUM
  42. TACROLIMUS. [Concomitant]
     Active Substance: TACROLIMUS
  43. ACETAMIN [Concomitant]
     Active Substance: ACETAMINOPHEN
  44. FUROSEMIDE. [Concomitant]
     Active Substance: FUROSEMIDE
  45. MONTELUKAST [Concomitant]
     Active Substance: MONTELUKAST SODIUM

REACTIONS (1)
  - Death [None]

NARRATIVE: CASE EVENT DATE: 20200626
